FAERS Safety Report 9130103 (Version 2)
Quarter: 2013Q1

REPORT INFORMATION
  Report Type: Spontaneous
  Country: US (occurrence: US)
  Receive Date: 20130228
  Receipt Date: 20130305
  Transmission Date: 20140127
  Serious: No
  Sender: FDA-Public Use
  Company Number: US-009507513-1302USA013516

PATIENT
  Sex: Female

DRUGS (2)
  1. AFRIN NO DRIP SINUS [Suspect]
     Indication: PRODUCT USED FOR UNKNOWN INDICATION
     Dosage: UNK, UNKNOWN
     Route: 045
  2. AFRIN NO DRIP SINUS [Suspect]
     Dosage: UNK, UNKNOWN
     Route: 045

REACTIONS (1)
  - Drug effect decreased [Unknown]
